FAERS Safety Report 14759681 (Version 5)
Quarter: 2019Q1

REPORT INFORMATION
  Report Type: Report from Study
  Country: NL (occurrence: NL)
  Receive Date: 20180413
  Receipt Date: 20190227
  Transmission Date: 20190417
  Serious: Yes (Hospitalization, Other)
  Sender: FDA-Public Use
  Company Number: NL-TEVA-2018-NL-881870

PATIENT
  Age: 37 Year
  Sex: Female

DRUGS (5)
  1. CIPROFLOXACINE [Suspect]
     Active Substance: CIPROFLOXACIN
     Indication: EAR DISORDER
     Route: 065
  2. NUVARING [Concomitant]
     Active Substance: ETHINYL ESTRADIOL\ETONOGESTREL
  3. VITAMINE B12 [Suspect]
     Active Substance: CYANOCOBALAMIN
     Route: 065
  4. COPAXONE [Suspect]
     Active Substance: GLATIRAMER ACETATE
     Dosage: 40 MG/ML
     Route: 058
     Dates: start: 20180901
  5. COPAXONE [Suspect]
     Active Substance: GLATIRAMER ACETATE
     Indication: MULTIPLE SCLEROSIS
     Dosage: TEMPORALLY STOPPED DUE TO AE
     Route: 058
     Dates: start: 20170406, end: 20180408

REACTIONS (9)
  - Nausea [Unknown]
  - Generalised erythema [Unknown]
  - Swelling face [Unknown]
  - Hypersensitivity [Recovered/Resolved]
  - Gait disturbance [Recovering/Resolving]
  - Swollen tongue [Unknown]
  - Ear disorder [Recovering/Resolving]
  - Feeling hot [Unknown]
  - Anaphylactic shock [Recovered/Resolved]

NARRATIVE: CASE EVENT DATE: 2018
